APPROVED DRUG PRODUCT: RISEDRONATE SODIUM
Active Ingredient: RISEDRONATE SODIUM
Strength: 35MG
Dosage Form/Route: TABLET;ORAL
Application: A207516 | Product #001
Applicant: HANGZHOU MINSHENG BINJIANG PHARMACEUTICAL CO LTD
Approved: Feb 15, 2019 | RLD: No | RS: No | Type: DISCN